FAERS Safety Report 5041453-8 (Version None)
Quarter: 2006Q2

REPORT INFORMATION
  Report Type: 
  Country: None (occurrence: None)
  Receive Date: 20060627
  Receipt Date: 20060612
  Transmission Date: 20061013
  Serious: Yes (Life-Threatening, Hospitalization, Other)
  Sender: FDA-Public Use
  Company Number: 2006S1002632

PATIENT
  Age: 58 Year
  Sex: Female
  Weight: 77.1115 kg

DRUGS (4)
  1. KETOCONAZOLE [Suspect]
     Indication: BODY TINEA
     Dosage: 200 MG; QD; ORAL
     Route: 048
     Dates: start: 20050603, end: 20050613
  2. KETOCONAZOLE [Suspect]
     Indication: FUNGAL INFECTION
     Dosage: 200 MG; QD; ORAL
     Route: 048
     Dates: start: 20050603, end: 20050613
  3. KETOCONAZOLE [Suspect]
     Indication: RASH
     Dosage: 200 MG; QD; ORAL
     Route: 048
     Dates: start: 20050603, end: 20050613
  4. CEPHALEXIN [Concomitant]

REACTIONS (17)
  - ABDOMINAL PAIN [None]
  - ALANINE AMINOTRANSFERASE INCREASED [None]
  - ASPARTATE AMINOTRANSFERASE INCREASED [None]
  - BLOOD ALKALINE PHOSPHATASE INCREASED [None]
  - CHILLS [None]
  - DIZZINESS [None]
  - EYE SWELLING [None]
  - HAEMATURIA [None]
  - HEPATIC ENZYME INCREASED [None]
  - NAUSEA [None]
  - OEDEMA MOUTH [None]
  - SWELLING FACE [None]
  - SWOLLEN TONGUE [None]
  - THERAPY NON-RESPONDER [None]
  - TREMOR [None]
  - URTICARIA [None]
  - VOMITING [None]
